FAERS Safety Report 19919958 (Version 1)
Quarter: 2021Q4

REPORT INFORMATION
  Report Type: Spontaneous
  Country: GB (occurrence: GB)
  Receive Date: 20211005
  Receipt Date: 20211005
  Transmission Date: 20220303
  Serious: Yes (Other)
  Sender: FDA-Public Use
  Company Number: GB-MERCK HEALTHCARE KGAA-9270024

PATIENT
  Sex: Female

DRUGS (1)
  1. SAIZEN [Suspect]
     Active Substance: SOMATROPIN
     Indication: Growth hormone deficiency
     Dosage: SAIZEN 20MG/2.5ML SOLUTION FOR INJECTION CARTRIDGES
     Route: 058

REACTIONS (2)
  - Brain neoplasm [Unknown]
  - Surgery [Unknown]
